FAERS Safety Report 19224645 (Version 2)
Quarter: 2021Q3

REPORT INFORMATION
  Report Type: Spontaneous
  Country: US (occurrence: US)
  Receive Date: 20210505
  Receipt Date: 20210920
  Transmission Date: 20211014
  Serious: Yes (Hospitalization, Other)
  Sender: FDA-Public Use
  Company Number: US-GILEAD-2021-0527881

PATIENT
  Sex: Female
  Weight: 98.87 kg

DRUGS (44)
  1. TRUVADA [Suspect]
     Active Substance: EMTRICITABINE\TENOFOVIR DISOPROXIL FUMARATE
     Dosage: UNK
     Route: 048
     Dates: start: 20080120, end: 2018
  2. ATROVENT [Concomitant]
     Active Substance: IPRATROPIUM BROMIDE
  3. HYDROCODONE [Concomitant]
     Active Substance: HYDROCODONE
  4. LORATADINE. [Concomitant]
     Active Substance: LORATADINE
  5. TRUVADA [Suspect]
     Active Substance: EMTRICITABINE\TENOFOVIR DISOPROXIL FUMARATE
     Indication: HIV INFECTION
     Dosage: UNK
     Route: 048
     Dates: start: 2004
  6. GENVOYA [Concomitant]
     Active Substance: COBICISTAT\ELVITEGRAVIR\EMTRICITABINE\TENOFOVIR ALAFENAMIDE FUMARATE
  7. ZIAGEN [Concomitant]
     Active Substance: ABACAVIR SULFATE
  8. FUZEON [Concomitant]
     Active Substance: ENFUVIRTIDE
  9. FLUOXETINE [Concomitant]
     Active Substance: FLUOXETINE HYDROCHLORIDE
  10. IBUPROFEN. [Concomitant]
     Active Substance: IBUPROFEN
  11. LEVETIRACETAM. [Concomitant]
     Active Substance: LEVETIRACETAM
  12. LOPERAMIDE [Concomitant]
     Active Substance: LOPERAMIDE
  13. NASONEX [Concomitant]
     Active Substance: MOMETASONE FUROATE
  14. PSEUDOEPHEDRINE. [Concomitant]
     Active Substance: PSEUDOEPHEDRINE HYDROCHLORIDE
  15. TRAMADOL. [Concomitant]
     Active Substance: TRAMADOL
  16. VIREAD [Suspect]
     Active Substance: TENOFOVIR DISOPROXIL FUMARATE
     Indication: HIV INFECTION
     Dosage: UNK
     Route: 048
     Dates: start: 200402, end: 200801
  17. TRUVADA [Suspect]
     Active Substance: EMTRICITABINE\TENOFOVIR DISOPROXIL FUMARATE
     Dosage: UNK
     Route: 048
     Dates: start: 200801, end: 200905
  18. BENZONATATE. [Concomitant]
     Active Substance: BENZONATATE
  19. FLUVIRIN [INFLUENZA VACCINE INACT SAG 3V] [Concomitant]
  20. FUROSEMIDE. [Concomitant]
     Active Substance: FUROSEMIDE
  21. INCRUSE ELLIPTA [Concomitant]
     Active Substance: UMECLIDINIUM BROMIDE
  22. NICOTINE. [Concomitant]
     Active Substance: NICOTINE
  23. OYST?CAL [Concomitant]
  24. SULFAMETHOXAZOLE [Concomitant]
     Active Substance: SULFAMETHOXAZOLE
  25. AZITHROMYCIN ANHYDROUS. [Concomitant]
     Active Substance: AZITHROMYCIN ANHYDROUS
  26. FLUARIX NOS [Concomitant]
     Active Substance: INFLUENZA VIRUS VACCINE
  27. OMEPRAZOLE. [Concomitant]
     Active Substance: OMEPRAZOLE
  28. OXYCODONE [Concomitant]
     Active Substance: OXYCODONE
  29. ISENTRESS [Concomitant]
     Active Substance: RALTEGRAVIR POTASSIUM
  30. ADVAIR HFA [Concomitant]
     Active Substance: FLUTICASONE PROPIONATE\SALMETEROL XINAFOATE
  31. AFRIN NASAL DECONGESTANT [Concomitant]
  32. LIDOCAINE. [Concomitant]
     Active Substance: LIDOCAINE
  33. LYRICA [Concomitant]
     Active Substance: PREGABALIN
  34. OYSCO [Concomitant]
  35. CLOBETASOL [Concomitant]
     Active Substance: CLOBETASOL
  36. KETOROLAC [Concomitant]
     Active Substance: KETOROLAC TROMETHAMINE
  37. MELOXICAM. [Concomitant]
     Active Substance: MELOXICAM
  38. PREZISTA [Concomitant]
     Active Substance: DARUNAVIR ETHANOLATE
  39. GUIATUSS [Concomitant]
     Active Substance: GUAIFENESIN
  40. PREDNISONE. [Concomitant]
     Active Substance: PREDNISONE
  41. DOCUSATE SODIUM. [Concomitant]
     Active Substance: DOCUSATE SODIUM
  42. ONDANSETRON [Concomitant]
     Active Substance: ONDANSETRON
  43. PROMETHAZINE [Concomitant]
     Active Substance: PROMETHAZINE HYDROCHLORIDE
  44. VENTOLIN [Concomitant]
     Active Substance: ALBUTEROL SULFATE

REACTIONS (11)
  - Multiple fractures [Not Recovered/Not Resolved]
  - Osteoporosis [Not Recovered/Not Resolved]
  - Osteopenia [Not Recovered/Not Resolved]
  - Bone cyst [Unknown]
  - Emotional distress [Not Recovered/Not Resolved]
  - Hand fracture [Recovered/Resolved]
  - Anhedonia [Not Recovered/Not Resolved]
  - Rib fracture [Recovered/Resolved]
  - Pain [Not Recovered/Not Resolved]
  - Dysstasia [Unknown]
  - Anxiety [Not Recovered/Not Resolved]

NARRATIVE: CASE EVENT DATE: 2015
